FAERS Safety Report 18873913 (Version 3)
Quarter: 2021Q4

REPORT INFORMATION
  Report Type: Spontaneous
  Country: US (occurrence: None)
  Receive Date: 20210210
  Receipt Date: 20211123
  Transmission Date: 20220303
  Serious: Yes (Other)
  Sender: FDA-Public Use
  Company Number: 2021A027729

PATIENT
  Age: 18238 Day
  Sex: Female
  Weight: 68 kg

DRUGS (32)
  1. NEXIUM [Suspect]
     Active Substance: ESOMEPRAZOLE MAGNESIUM
     Indication: Gastrooesophageal reflux disease
     Route: 048
     Dates: start: 2001, end: 2017
  2. PRILOSEC [Suspect]
     Active Substance: OMEPRAZOLE MAGNESIUM
     Indication: Gastrooesophageal reflux disease
     Dosage: 40.0MG UNKNOWN
     Route: 048
     Dates: start: 2001, end: 2017
  3. PRILOSEC [Suspect]
     Active Substance: OMEPRAZOLE MAGNESIUM
     Indication: Gastrooesophageal reflux disease
     Dosage: GENERIC20.0MG UNKNOWN
     Route: 065
     Dates: start: 2012
  4. PREVACID [Suspect]
     Active Substance: LANSOPRAZOLE
     Indication: Gastrooesophageal reflux disease
     Route: 065
     Dates: start: 2001, end: 2017
  5. ALBUTEROL [Concomitant]
     Active Substance: ALBUTEROL
  6. ALPRAZOLAM [Concomitant]
     Active Substance: ALPRAZOLAM
  7. ACETYLSALICYLIC ACID/BISOPROLOL [Concomitant]
  8. BUPROPION [Concomitant]
     Active Substance: BUPROPION
  9. CETIRIZINE HYDROCHLORIDE [Concomitant]
     Active Substance: CETIRIZINE HYDROCHLORIDE
  10. CLONIDINE [Concomitant]
     Active Substance: CLONIDINE
  11. CYANOCOBALAMIN [Concomitant]
     Active Substance: CYANOCOBALAMIN
  12. DOCUSATE [Concomitant]
     Active Substance: DOCUSATE
  13. DULOXETINE [Concomitant]
     Active Substance: DULOXETINE
  14. PREDNISONE [Concomitant]
     Active Substance: PREDNISONE
  15. OXYCODONE [Concomitant]
     Active Substance: OXYCODONE
  16. LORATADINE [Concomitant]
     Active Substance: LORATADINE
  17. METOPROLOL [Concomitant]
     Active Substance: METOPROLOL
  18. MONTELUKAST [Concomitant]
     Active Substance: MONTELUKAST SODIUM
  19. NITROFURANTOIN [Concomitant]
     Active Substance: NITROFURANTOIN
  20. TIOTROPIUM [Concomitant]
     Active Substance: TIOTROPIUM
  21. ZOLPIDEM [Concomitant]
     Active Substance: ZOLPIDEM TARTRATE
  22. SINGULAIR [Concomitant]
     Active Substance: MONTELUKAST SODIUM
  23. MELOXICAM [Concomitant]
     Active Substance: MELOXICAM
     Indication: Pain
  24. EVOXAC [Concomitant]
     Active Substance: CEVIMELINE HYDROCHLORIDE
  25. KLONOPIN [Concomitant]
     Active Substance: CLONAZEPAM
  26. LYRICA [Concomitant]
     Active Substance: PREGABALIN
  27. LISINOPRIL [Concomitant]
     Active Substance: LISINOPRIL
     Indication: Blood pressure abnormal
     Dates: start: 201609
  28. ATORVASTATIN [Concomitant]
     Active Substance: ATORVASTATIN
     Indication: Blood cholesterol abnormal
     Dates: start: 2016
  29. AMOXICILLIN [Concomitant]
     Active Substance: AMOXICILLIN
     Indication: Infection
     Dates: start: 2011, end: 2016
  30. LEVOFLOXACIN [Concomitant]
     Active Substance: LEVOFLOXACIN
     Indication: Infection
     Dates: start: 2015
  31. CRESTOR [Concomitant]
     Active Substance: ROSUVASTATIN CALCIUM
     Indication: Blood cholesterol abnormal
     Dates: start: 2011
  32. ASPIRIN [Concomitant]
     Active Substance: ASPIRIN
     Indication: Pain
     Dosage: AS NEEDED

REACTIONS (2)
  - Acute kidney injury [Not Recovered/Not Resolved]
  - Renal failure [Unknown]

NARRATIVE: CASE EVENT DATE: 20170206
